FAERS Safety Report 8585798 (Version 6)
Quarter: 2013Q3

REPORT INFORMATION
  Report Type: Spontaneous
  Country: US (occurrence: US)
  Receive Date: 20120530
  Receipt Date: 20130711
  Transmission Date: 20140515
  Serious: Yes (Hospitalization, Other)
  Sender: FDA-Public Use
  Company Number: US-PFIZER INC-2012126355

PATIENT
  Age: 64 Year
  Sex: Female
  Weight: 57.14 kg

DRUGS (5)
  1. LIPITOR [Suspect]
     Indication: BLOOD CHOLESTEROL INCREASED
     Dosage: 10 MG, DAILY
     Route: 065
  2. PROTONIX [Suspect]
     Indication: ABDOMINAL HERNIA
     Dosage: 40 MG, DAILY
     Route: 065
  3. NORVASC [Suspect]
     Indication: HYPERTENSION
     Dosage: 10 MG, DAILY
  4. XANAX [Concomitant]
     Indication: DEPRESSION
     Dosage: UNK
  5. TRAMADOL [Concomitant]
     Indication: SPONDYLITIS
     Dosage: UNK

REACTIONS (7)
  - Gastric neoplasm [Unknown]
  - Abdominal pain upper [Unknown]
  - Abdominal hernia [Unknown]
  - Abdominal distension [Unknown]
  - Weight increased [Unknown]
  - Drug intolerance [Unknown]
  - Off label use [Unknown]
